FAERS Safety Report 6440026-X (Version None)
Quarter: 2009Q4

REPORT INFORMATION
  Report Type: 
  Country: None (occurrence: None)
  Receive Date: 20091113
  Receipt Date: 20091109
  Transmission Date: 20100525
  Serious: Yes (Death, Hospitalization)
  Sender: FDA-Public Use
  Company Number: US-GENENTECH-292836

PATIENT
  Sex: Female

DRUGS (3)
  1. XOLAIR [Suspect]
     Indication: ASTHMA
     Dosage: 300 MG, Q2W
     Route: 058
     Dates: start: 20071101, end: 20090922
  2. AVASTIN [Suspect]
     Indication: COLON CANCER METASTATIC
     Dosage: UNK
     Dates: start: 20090212
  3. CHEMOTHERAPY (UNK INGREDIENTS) [Concomitant]
     Indication: NEOPLASM MALIGNANT

REACTIONS (5)
  - ANAEMIA [None]
  - DEATH [None]
  - LEUKOCYTOSIS [None]
  - LUNG NEOPLASM MALIGNANT [None]
  - PULMONARY OEDEMA [None]
